FAERS Safety Report 6997384-7 (Version None)
Quarter: 2010Q3

REPORT INFORMATION
  Report Type: 
  Country: None (occurrence: None)
  Receive Date: 20100918
  Receipt Date: 20091009
  Transmission Date: 20110219
  Serious: No
  Sender: FDA-Public Use
  Company Number: US-WYE-H11537109

PATIENT
  Age: 76 Year
  Sex: Female
  Weight: 74.91 kg

DRUGS (4)
  1. ADVIL PM [Suspect]
     Indication: INSOMNIA
     Dosage: 1 CAPLET
     Route: 048
     Dates: start: 20091007, end: 20091007
  2. ADVIL PM [Suspect]
     Dosage: 2 CAPLETS
     Route: 048
     Dates: start: 20091008
  3. CALCIUM [Concomitant]
  4. FOSAMAX [Concomitant]

REACTIONS (4)
  - BALANCE DISORDER [None]
  - DIZZINESS [None]
  - DRUG EFFECT DECREASED [None]
  - VISION BLURRED [None]
